FAERS Safety Report 7550644-3 (Version None)
Quarter: 2011Q2

REPORT INFORMATION
  Report Type: 
  Country: None (occurrence: None)
  Receive Date: 20110616
  Receipt Date: 20110607
  Transmission Date: 20111010
  Serious: Yes (Death)
  Sender: FDA-Public Use
  Company Number: US-CELGENEUS-163-21880-11061098

PATIENT
  Sex: Female

DRUGS (9)
  1. METFORMIN HCL [Concomitant]
     Route: 065
  2. PREDNISONE [Concomitant]
     Route: 065
  3. LISINOPRIL [Concomitant]
     Route: 065
  4. REVLIMID [Suspect]
     Indication: LYMPHOMA
     Dosage: 25 MILLIGRAM
     Route: 048
     Dates: start: 20101117
  5. RANITIDINE [Concomitant]
     Route: 065
  6. VERPAMIL HCL [Concomitant]
     Route: 065
  7. OMEPRAZOLE [Concomitant]
     Route: 065
  8. METOPROLOL TARTRATE [Concomitant]
     Route: 065
  9. DOXEPIN [Concomitant]
     Route: 065

REACTIONS (1)
  - DEATH [None]
